FAERS Safety Report 13659252 (Version 1)
Quarter: 2017Q2

REPORT INFORMATION
  Report Type: Spontaneous
  Country: US (occurrence: US)
  Receive Date: 20170616
  Receipt Date: 20170616
  Transmission Date: 20170830
  Serious: No
  Sender: FDA-Public Use
  Company Number: None

PATIENT
  Age: 57 Year
  Sex: Female
  Weight: 55.3 kg

DRUGS (12)
  1. APAP [Concomitant]
     Active Substance: ACETAMINOPHEN
  2. KLONOPIN [Suspect]
     Active Substance: CLONAZEPAM
  3. IMDUR [Concomitant]
     Active Substance: ISOSORBIDE MONONITRATE
  4. NTG [Concomitant]
     Active Substance: NITROGLYCERIN
  5. ALIROCUMAB [Concomitant]
     Active Substance: ALIROCUMAB
  6. KEPPRA [Concomitant]
     Active Substance: LEVETIRACETAM
  7. SYNTHROID [Concomitant]
     Active Substance: LEVOTHYROXINE SODIUM
  8. OXYCONTIN [Suspect]
     Active Substance: OXYCODONE HYDROCHLORIDE
     Indication: CHRONIC IDIOPATHIC PAIN SYNDROME
     Dosage: DATES OF USE - CHRONIC
     Route: 048
  9. CILOSTAZOL. [Concomitant]
     Active Substance: CILOSTAZOL
  10. OXYCODONE [Suspect]
     Active Substance: OXYCODONE
     Indication: CHRONIC IDIOPATHIC PAIN SYNDROME
     Dosage: DATES OF USE - CHRONIC?FREQUENCY - 8 HRS PRN
     Route: 048
  11. NEURONTIN [Concomitant]
     Active Substance: GABAPENTIN
  12. LOPRESSOR [Concomitant]
     Active Substance: METOPROLOL TARTRATE

REACTIONS (4)
  - Toxicity to various agents [None]
  - Somnolence [None]
  - Accidental poisoning [None]
  - Lethargy [None]

NARRATIVE: CASE EVENT DATE: 20170517
